FAERS Safety Report 6291971-X (Version None)
Quarter: 2009Q3

REPORT INFORMATION
  Report Type: 
  Country: None (occurrence: None)
  Receive Date: 20090729
  Receipt Date: 20090721
  Transmission Date: 20100115
  Serious: Yes (Hospitalization)
  Sender: FDA-Public Use
  Company Number: SPV1-2009-01512

PATIENT
  Age: 63 Year
  Sex: Male
  Weight: 83.9 kg

DRUGS (7)
  1. FOSRENOL [Suspect]
     Indication: HYPERPHOSPHATAEMIA
     Dosage: 1000 MG, 3X/DAY:TID, ORAL
     Route: 048
     Dates: start: 20070101, end: 20070501
  2. PROGRAF [Suspect]
     Indication: CARDIAC DISORDER
     Dosage: 3 MG, 2X/DAY:BID, ORAL
     Route: 048
     Dates: start: 19990101
  3. CADUET [Suspect]
     Indication: BLOOD CHOLESTEROL
     Dosage: 20 MG, 1X/DAY:QD, ORAL
     Route: 048
  4. CADUET [Suspect]
     Indication: BLOOD PRESSURE
     Dosage: 20 MG, 1X/DAY:QD, ORAL
     Route: 048
  5. CARVEDILOL (CARVEDILOL) CAPSULE [Concomitant]
  6. PREDNISONE TAB [Concomitant]
  7. KETOCONAZOLE [Concomitant]

REACTIONS (1)
  - PANCREATITIS [None]
